FAERS Safety Report 5012607-1 (Version None)
Quarter: 2006Q2

REPORT INFORMATION
  Report Type: 
  Country: None (occurrence: None)
  Receive Date: 20060410
  Receipt Date: 20060106
  Transmission Date: 20061013
  Serious: No
  Sender: FDA-Public Use
  Company Number: ENTC2006-0018

PATIENT
  Age: 42 Year
  Sex: Male

DRUGS (1)
  1. STALEVO 150 [Suspect]
     Indication: PARKINSON'S DISEASE
     Dosage: 200 MG Q4H, ORAL
     Route: 048
     Dates: start: 20051101

REACTIONS (2)
  - DRUG EFFECT DECREASED [None]
  - HYPERHIDROSIS [None]
